FAERS Safety Report 11473268 (Version 1)
Quarter: 2015Q3

REPORT INFORMATION
  Report Type: Spontaneous
  Country: TW (occurrence: TW)
  Receive Date: 20150908
  Receipt Date: 20150908
  Transmission Date: 20151125
  Serious: Yes (Other)
  Sender: FDA-Public Use
  Company Number: PHHY2015TW105551

PATIENT
  Age: 15 Year
  Sex: Female

DRUGS (1)
  1. WARFARIN [Suspect]
     Active Substance: WARFARIN
     Indication: SEGMENTED HYALINISING VASCULITIS
     Dosage: 1.65 MG, QD
     Route: 048

REACTIONS (2)
  - Protein S deficiency [Recovered/Resolved]
  - Skin necrosis [Recovered/Resolved]
